FAERS Safety Report 25726773 (Version 1)
Quarter: 2025Q3

REPORT INFORMATION
  Report Type: Spontaneous
  Country: CN (occurrence: CN)
  Receive Date: 20250826
  Receipt Date: 20250826
  Transmission Date: 20251020
  Serious: Yes (Other)
  Sender: GILEAD
  Company Number: CN-GILEAD-2025-0724898

PATIENT
  Age: 28 Year
  Sex: Female

DRUGS (1)
  1. TRUVADA [Suspect]
     Active Substance: EMTRICITABINE\TENOFOVIR DISOPROXIL FUMARATE
     Indication: Prophylaxis against HIV infection
     Dosage: UNK UNK, QD (28 CONSECUTIVE DAYS AT A FIXED TIME EACH DAY)
     Route: 065
     Dates: end: 20240617

REACTIONS (16)
  - HIV infection [Unknown]
  - Gastrooesophageal reflux disease [Unknown]
  - Rash erythematous [Unknown]
  - Chest discomfort [Unknown]
  - Cough [Unknown]
  - Rash [Unknown]
  - Insomnia [Unknown]
  - Pyrexia [Unknown]
  - Nausea [Unknown]
  - Dizziness [Unknown]
  - Asthenia [Unknown]
  - Pruritus [Unknown]
  - Dyspnoea [Unknown]
  - Product use in unapproved indication [Unknown]
  - Product use issue [Unknown]
  - Drug ineffective [Unknown]

NARRATIVE: CASE EVENT DATE: 20240710
